FAERS Safety Report 10562872 (Version 1)
Quarter: 2014Q4

REPORT INFORMATION
  Report Type: Spontaneous
  Country: US (occurrence: None)
  Receive Date: 20141103
  Receipt Date: 20141103
  Transmission Date: 20150529
  Serious: Yes (Hospitalization, Disabling, Other)
  Sender: FDA-Public Use
  Company Number: None

PATIENT
  Age: 50 Year
  Sex: Female
  Weight: 113.4 kg

DRUGS (1)
  1. PAROXETINE [Suspect]
     Active Substance: PAROXETINE\PAROXETINE HYDROCHLORIDE
     Indication: ANXIETY
     Dosage: 1 PILL AS NEEDED TAKEN BY MOUTH
     Route: 048
     Dates: start: 20130926, end: 20141021

REACTIONS (21)
  - Head titubation [None]
  - Stress [None]
  - Tremor [None]
  - Blepharospasm [None]
  - Hypoaesthesia [None]
  - Feeling abnormal [None]
  - Drug abuser [None]
  - Memory impairment [None]
  - Somnolence [None]
  - Dysphemia [None]
  - Tinnitus [None]
  - Abasia [None]
  - Impaired driving ability [None]
  - Drug ineffective [None]
  - Hyperhidrosis [None]
  - Speech disorder [None]
  - Drug prescribing error [None]
  - Fatigue [None]
  - Dizziness [None]
  - Fall [None]
  - Confusional state [None]

NARRATIVE: CASE EVENT DATE: 20140928
